FAERS Safety Report 4556404-X (Version None)
Quarter: 2005Q1

REPORT INFORMATION
  Report Type: 
  Country: None (occurrence: None)
  Receive Date: 20050120
  Receipt Date: 20050120
  Transmission Date: 20050727
  Serious: Yes (Hospitalization)
  Sender: FDA-Public Use
  Company Number: DE-JNJFOC-20040808781

PATIENT
  Age: 58 Year
  Sex: Male

DRUGS (1)
  1. INFLIXIMAB [Suspect]
     Indication: ANKYLOSING SPONDYLITIS
     Route: 042

REACTIONS (6)
  - ANAEMIA [None]
  - HIV TEST POSITIVE [None]
  - HYPERGAMMAGLOBULINAEMIA [None]
  - MULTIPLE MYELOMA [None]
  - PLASMACYTOMA [None]
  - THROMBOCYTOPENIA [None]
